FAERS Safety Report 9814430 (Version 2)
Quarter: 2014Q1

REPORT INFORMATION
  Report Type: Spontaneous
  Country: US (occurrence: US)
  Receive Date: 20140113
  Receipt Date: 20140124
  Transmission Date: 20141002
  Serious: Yes (Hospitalization)
  Sender: FDA-Public Use
  Company Number: US-B.I. PHARMACEUTICALS,INC./RIDGEFIELD-2014-BI-00458BP

PATIENT
  Age: 60 Year
  Sex: Male
  Weight: 95.25 kg

DRUGS (2)
  1. PRADAXA [Suspect]
     Indication: ANTICOAGULANT THERAPY
     Dates: start: 20120704, end: 20121104
  2. ANACIN [Concomitant]

REACTIONS (3)
  - Ulcer haemorrhage [Unknown]
  - Rectal haemorrhage [Unknown]
  - Cerebrovascular accident [Unknown]
